FAERS Safety Report 7825802-0 (Version None)
Quarter: 2011Q4

REPORT INFORMATION
  Report Type: 
  Country: None (occurrence: None)
  Receive Date: 20111019
  Receipt Date: 20111006
  Transmission Date: 20120403
  Serious: Yes (Other)
  Sender: FDA-Public Use
  Company Number: FR-ELI_LILLY_AND_COMPANY-FR201110002221

PATIENT
  Sex: Female
  Weight: 55 kg

DRUGS (1)
  1. RALOXIFENE [Suspect]
     Indication: OSTEOPOROSIS
     Dosage: 60 MG, UNK
     Dates: start: 20080401, end: 20091201

REACTIONS (2)
  - BLADDER CANCER [None]
  - BLADDER CANCER RECURRENT [None]
